FAERS Safety Report 9858571 (Version 1)
Quarter: 2014Q1

REPORT INFORMATION
  Report Type: Spontaneous
  Country: CA (occurrence: CA)
  Receive Date: 20140131
  Receipt Date: 20140131
  Transmission Date: 20141002
  Serious: Yes (Hospitalization)
  Sender: FDA-Public Use
  Company Number: CA-SA-2014SA009586

PATIENT
  Sex: Female
  Weight: 47.6 kg

DRUGS (15)
  1. ARAVA [Suspect]
     Indication: PRODUCT USED FOR UNKNOWN INDICATION
     Route: 065
  2. GABAPENTIN [Suspect]
     Indication: PRODUCT USED FOR UNKNOWN INDICATION
     Route: 065
  3. RITUXAN [Suspect]
     Indication: RHEUMATOID ARTHRITIS
     Route: 065
     Dates: start: 20110615
  4. RITUXAN [Suspect]
     Indication: RHEUMATOID ARTHRITIS
     Dosage: FREQUENCY: DAY 1,15
     Route: 042
  5. DIPHENHYDRAMINE HYDROCHLORIDE [Concomitant]
     Route: 048
     Dates: start: 20110615
  6. ACETAMINOPHEN [Concomitant]
     Route: 048
     Dates: start: 20110615
  7. METHYLPREDNISOLONE [Concomitant]
     Route: 042
     Dates: start: 20110615
  8. ZOPICLONE [Concomitant]
  9. PANTALOC [Concomitant]
  10. EZETROL [Concomitant]
  11. VITAMIN D [Concomitant]
  12. VITAMIN C [Concomitant]
  13. FLAXSEED OIL [Concomitant]
  14. CALCIUM [Concomitant]
  15. IRON [Concomitant]

REACTIONS (4)
  - Crohn^s disease [Unknown]
  - Dehydration [Unknown]
  - Malnutrition [Unknown]
  - Weight decreased [Recovered/Resolved]
